FAERS Safety Report 18721988 (Version 2)
Quarter: 2021Q4

REPORT INFORMATION
  Report Type: Spontaneous
  Country: US (occurrence: US)
  Receive Date: 20210111
  Receipt Date: 20211231
  Transmission Date: 20220303
  Serious: Yes (Life-Threatening, Hospitalization, Other)
  Sender: FDA-Public Use
  Company Number: US-MLMSERVICE-20201228-2646308-1

PATIENT
  Age: 35 Year
  Sex: Female
  Weight: 73 kg

DRUGS (42)
  1. LIDOCAINE [Suspect]
     Active Substance: LIDOCAINE
     Indication: Ventricular arrhythmia
     Dosage: 4 MILLIGRAM (1 MINUTE)
     Route: 042
  2. LIDOCAINE [Suspect]
     Active Substance: LIDOCAINE
     Dosage: 78 MILLIGRAM (TOTAL)
     Route: 042
  3. LIDOCAINE [Suspect]
     Active Substance: LIDOCAINE
     Dosage: 3 MILLIGRAM (1 MINUTE)
     Route: 042
  4. LIDOCAINE [Suspect]
     Active Substance: LIDOCAINE
     Dosage: 2 MILLIGRAM (1 MINUTE)
     Route: 042
  5. LIDOCAINE [Suspect]
     Active Substance: LIDOCAINE
     Dosage: 2 MG/MINUTE
     Route: 042
  6. LIDOCAINE [Suspect]
     Active Substance: LIDOCAINE
     Dosage: 3 MG/MINUTE
     Route: 042
  7. LIDOCAINE [Suspect]
     Active Substance: LIDOCAINE
     Dosage: 4 MG/MINUTE
     Route: 042
  8. LIDOCAINE [Suspect]
     Active Substance: LIDOCAINE
     Dosage: 78 MILLIGRAM
     Route: 040
  9. LIDOCAINE [Suspect]
     Active Substance: LIDOCAINE
     Dosage: 100 MILLIGRAM
     Route: 040
  10. LIDOCAINE [Suspect]
     Active Substance: LIDOCAINE
     Dosage: 200 MILLIGRAM
     Route: 040
  11. LIDOCAINE [Suspect]
     Active Substance: LIDOCAINE
     Dosage: 0.04 MICROGRAM/KILOGRAM, QMINUTE
  12. LIDOCAINE [Suspect]
     Active Substance: LIDOCAINE
     Dosage: 0.06 MICROGRAM/KILOGRAM, QMINUTE
  13. LIDOCAINE [Suspect]
     Active Substance: LIDOCAINE
     Dosage: 6 MICROGRAM/KILOGRAM, QMINUTE
  14. LIDOCAINE [Suspect]
     Active Substance: LIDOCAINE
     Dosage: 7 MICROGRAM/KILOGRAM, QMINUTE
  15. LIDOCAINE [Suspect]
     Active Substance: LIDOCAINE
     Dosage: 50 MILLIGRAM
     Route: 065
  16. LIDOCAINE [Suspect]
     Active Substance: LIDOCAINE
     Dosage: 200 MILLIGRAM
     Route: 065
  17. LIDOCAINE [Suspect]
     Active Substance: LIDOCAINE
     Dosage: 34 MILLIGRAM
     Route: 065
  18. LIDOCAINE [Suspect]
     Active Substance: LIDOCAINE
     Dosage: 10 MILLIGRAM, QH
  19. LIDOCAINE [Suspect]
     Active Substance: LIDOCAINE
     Dosage: 150 MILLIGRAM BOLUS
  20. LIDOCAINE [Suspect]
     Active Substance: LIDOCAINE
     Dosage: 1 MILLIGRAM, QMINUTE
  21. LIDOCAINE [Suspect]
     Active Substance: LIDOCAINE
     Dosage: 0.5 MILLIGRAM, QMINUTE
  22. LIDOCAINE [Suspect]
     Active Substance: LIDOCAINE
     Dosage: 0.4 MICROGRAM/KILOGRAM, QMINUTE
  23. LIDOCAINE [Suspect]
     Active Substance: LIDOCAINE
     Dosage: 1 MILLIGRAM, QMINUTE
  24. LIDOCAINE [Suspect]
     Active Substance: LIDOCAINE
     Dosage: 1.5 MICROGRAM/KILOGRAM, QMINUTE
  25. LIDOCAINE [Suspect]
     Active Substance: LIDOCAINE
     Dosage: 0.03 UNITS/MINUTE
     Route: 065
  26. KETAMINE HYDROCHLORIDE [Suspect]
     Active Substance: KETAMINE HYDROCHLORIDE
     Indication: Product used for unknown indication
     Dosage: 10 MILLIGRAM, EVERY HOUR
     Route: 065
  27. KETAMINE HYDROCHLORIDE [Suspect]
     Active Substance: KETAMINE HYDROCHLORIDE
     Dosage: 50 NG/KG
     Route: 065
  28. KETAMINE HYDROCHLORIDE [Suspect]
     Active Substance: KETAMINE HYDROCHLORIDE
     Dosage: 0.7 MICROGRAM/KILOGRAM, QMINUTE
     Route: 065
  29. KETAMINE HYDROCHLORIDE [Suspect]
     Active Substance: KETAMINE HYDROCHLORIDE
     Dosage: UNK
     Route: 065
  30. KETAMINE HYDROCHLORIDE [Suspect]
     Active Substance: KETAMINE HYDROCHLORIDE
     Dosage: 50 MILLIGRAM
     Route: 065
  31. DOBUTAMINE [Concomitant]
     Active Substance: DOBUTAMINE HYDROCHLORIDE
     Indication: Ventricular dysfunction
     Dosage: 7 MICROGRAM/KILOGRAM (1 MINUTE)
     Route: 065
  32. DOBUTAMINE [Concomitant]
     Active Substance: DOBUTAMINE HYDROCHLORIDE
     Dosage: 6 MICROGRAM/KILOGRAM (1 MINUTE)
     Route: 065
  33. EPINEPHRINE [Concomitant]
     Active Substance: EPINEPHRINE
     Indication: Product used for unknown indication
     Dosage: 0.04 MICROGRAM/KILOGRAM (1 MINUTE)
     Route: 065
  34. EPINEPHRINE [Concomitant]
     Active Substance: EPINEPHRINE
     Dosage: 0.06 MICROGRAM/KILOGRAM (1 MINUTE)
     Route: 065
  35. AMIODARONE [Concomitant]
     Active Substance: AMIODARONE
     Indication: Ventricular tachycardia
     Dosage: 1 MILLIGRAM (1 MINUTE)
  36. AMIODARONE [Concomitant]
     Active Substance: AMIODARONE
     Dosage: 1 MILLIGRAM (1 MINUTE)
  37. AMIODARONE [Concomitant]
     Active Substance: AMIODARONE
     Dosage: 0.5 MILLIGRAM (1 MINUTE)
  38. AMIODARONE [Concomitant]
     Active Substance: AMIODARONE
     Dosage: 150 MILLIGRAM (BOLUSES THROUGHOUT POD ONE AND TWO)
  39. AMIODARONE [Concomitant]
     Active Substance: AMIODARONE
     Dosage: 150 MILLIGRAM (BOLUS)
  40. DEXMEDETOMIDINE [Concomitant]
     Active Substance: DEXMEDETOMIDINE
     Indication: Product used for unknown indication
     Dosage: 0.7 MICROGRAM/KILOGRAM, EVERY HOUR
     Route: 065
  41. VASOPRESSIN [Concomitant]
     Active Substance: VASOPRESSIN
     Indication: Product used for unknown indication
     Dosage: 0.03 INTERNATIONAL UNIT
     Route: 065
  42. EPOPROSTENOL [Concomitant]
     Active Substance: EPOPROSTENOL
     Indication: Product used for unknown indication
     Dosage: 50 NANOGRAM PER KILOGRAM
     Route: 065

REACTIONS (12)
  - Local anaesthetic systemic toxicity [Recovered/Resolved]
  - Neurotoxicity [Recovered/Resolved]
  - Status epilepticus [Recovered/Resolved]
  - Drug level above therapeutic [Recovered/Resolved]
  - Generalised tonic-clonic seizure [Recovered/Resolved]
  - Hepatic function abnormal [Recovering/Resolving]
  - Drug interaction [Recovering/Resolving]
  - Respiratory acidosis [Recovered/Resolved]
  - Ventricular arrhythmia [Recovering/Resolving]
  - Electrocardiogram QT prolonged [Unknown]
  - Torsade de pointes [Recovering/Resolving]
  - Off label use [Unknown]
